FAERS Safety Report 12397866 (Version 1)
Quarter: 2016Q2

REPORT INFORMATION
  Report Type: Spontaneous
  Country: US (occurrence: None)
  Receive Date: 20160520
  Receipt Date: 20160520
  Transmission Date: 20160815
  Serious: No
  Sender: FDA-Public Use
  Company Number: UNT-2016-001287

PATIENT
  Age: 81 Year
  Sex: Male
  Weight: 87.5 kg

DRUGS (1)
  1. TYVASO [Suspect]
     Active Substance: TREPROSTINIL

REACTIONS (2)
  - Device malfunction [None]
  - Incorrect dose administered by device [None]
